FAERS Safety Report 9593150 (Version 3)
Quarter: 2014Q2

REPORT INFORMATION
  Report Type: Spontaneous
  Country: IT (occurrence: IT)
  Receive Date: 20131004
  Receipt Date: 20140408
  Transmission Date: 20141212
  Serious: Yes (Life-Threatening)
  Sender: FDA-Public Use
  Company Number: IT-VERTEX PHARMACEUTICALS INC-2013-010156

PATIENT
  Age: 49 Year
  Sex: Female
  Weight: 95 kg

DRUGS (6)
  1. INCIVO [Suspect]
     Indication: CHRONIC HEPATITIS C
     Dosage: 2250 MG, QD (6 X 375 MG)
     Route: 048
     Dates: start: 20130905, end: 20130926
  2. PEGASYS [Interacting]
     Indication: CHRONIC HEPATITIS C
     Dosage: 180 ?G, QW
     Route: 058
     Dates: start: 20130905, end: 20130926
  3. REBETOL [Suspect]
     Indication: CHRONIC HEPATITIS C
     Dosage: 200 MG, QD 5 TIMES A DAY
     Route: 048
     Dates: start: 20130905, end: 20130926
  4. INSULIN LANTUS [Concomitant]
     Indication: DIABETES MELLITUS
     Dosage: 22 IU, UNK
     Route: 058
  5. AMLODIPINE [Concomitant]
     Indication: HYPERTENSION
     Dosage: 10 MG, QD
     Route: 048
  6. BISOPROLOL [Concomitant]
     Indication: HYPERTENSION
     Dosage: 10 MG, QD
     Route: 065

REACTIONS (3)
  - Mental disorder [Recovering/Resolving]
  - Suicidal ideation [Recovering/Resolving]
  - Drug interaction [Unknown]
